FAERS Safety Report 5157816-6 (Version None)
Quarter: 2006Q4

REPORT INFORMATION
  Report Type: 
  Country: None (occurrence: None)
  Receive Date: 20061116
  Receipt Date: 20061101
  Transmission Date: 20070319
  Serious: Yes (Other)
  Sender: FDA-Public Use
  Company Number: 2006139370

PATIENT
  Sex: Male

DRUGS (1)
  1. ESTRAMUSTINE PHOSPHATE SODIUM CAPSULE (ESTRAMUSTINE PHOSPHATE SODIUM) [Suspect]
     Dosage: ORAL
     Route: 048
     Dates: start: 20061010, end: 20061022

REACTIONS (2)
  - INTERSTITIAL LUNG DISEASE [None]
  - TREATMENT NONCOMPLIANCE [None]
